FAERS Safety Report 6171549-9 (Version None)
Quarter: 2009Q2

REPORT INFORMATION
  Report Type: 
  Country: None (occurrence: None)
  Receive Date: 20090424
  Receipt Date: 20080328
  Transmission Date: 20091009
  Serious: Yes (Hospitalization)
  Sender: FDA-Public Use
  Company Number: WAES 0803USA04974

PATIENT
  Age: 31 Year
  Sex: Male

DRUGS (5)
  1. SINGULAIR [Suspect]
     Indication: ASTHMA
     Dosage: 20 MG/DAILY/PO
     Route: 048
     Dates: start: 20070423
  2. ADVAIR HFA [Concomitant]
  3. EFFEXOR [Concomitant]
  4. [THERAPY UNSPECIFIED] [Concomitant]
  5. ALBUTEROL [Concomitant]

REACTIONS (2)
  - CONVULSION [None]
  - OVERDOSE [None]
